FAERS Safety Report 11427400 (Version 1)
Quarter: 2015Q3

REPORT INFORMATION
  Report Type: Spontaneous
  Country: US (occurrence: US)
  Receive Date: 20150827
  Receipt Date: 20150827
  Transmission Date: 20151125
  Serious: No
  Sender: FDA-Public Use
  Company Number: US-SA-2015SA107400

PATIENT
  Age: 47 Year
  Sex: Male
  Weight: 66.6 kg

DRUGS (16)
  1. LASIX [Concomitant]
     Active Substance: FUROSEMIDE
     Dosage: 1 DOSE AS DIRECTED
     Route: 065
     Dates: start: 20110610
  2. FLUTICASONE [Concomitant]
     Active Substance: FLUTICASONE\FLUTICASONE PROPIONATE
     Dosage: 1 DOSE AS DIRECTED
     Route: 065
     Dates: start: 20110610
  3. METOCLOPRAMIDE. [Concomitant]
     Active Substance: METOCLOPRAMIDE
     Dosage: 1 DOSE AS DIRECTED
     Route: 065
     Dates: start: 20110610
  4. PRAVASTATIN SODIUM. [Concomitant]
     Active Substance: PRAVASTATIN SODIUM
     Dosage: 1 DOSE AS DIRECTED
     Route: 065
     Dates: start: 20110610
  5. GABAPENTIN. [Concomitant]
     Active Substance: GABAPENTIN
     Dosage: 1 DOSE AS DIRECTED
     Route: 065
     Dates: start: 20110610
  6. DIPHENHYDRAMINE HYDROCHLORIDE. [Concomitant]
     Active Substance: DIPHENHYDRAMINE HYDROCHLORIDE
     Indication: ANAPHYLACTIC REACTION
     Dosage: 1 DOSE AS DIRECTED
     Dates: start: 20090522
  7. LEVAQUIN [Concomitant]
     Active Substance: LEVOFLOXACIN
     Dosage: 1 DOSE AS DIRECTED
     Route: 065
     Dates: start: 20140423
  8. SENSIPAR [Concomitant]
     Active Substance: CINACALCET HYDROCHLORIDE
     Dosage: 1 DOSE AS DIRECTED
     Route: 065
     Dates: start: 20131129
  9. FABRAZYME [Suspect]
     Active Substance: AGALSIDASE BETA
     Indication: FABRY^S DISEASE
     Route: 041
     Dates: start: 20090522
  10. NORMAL SALINE [Concomitant]
     Active Substance: SODIUM CHLORIDE
     Indication: MEDICATION DILUTION
     Dosage: 1 DOSE AS DIRECTED
     Route: 065
     Dates: start: 20090522
  11. EPIPEN [Concomitant]
     Active Substance: EPINEPHRINE
     Indication: ANAPHYLACTIC REACTION
     Dosage: 1 DOSE AS DIRECTED
     Route: 065
     Dates: start: 20150522
  12. MYFORTIC [Concomitant]
     Active Substance: MYCOPHENOLATE SODIUM
     Dosage: 1 DOSE AS DIRECTED
     Route: 065
     Dates: start: 20110610
  13. TACROLIMUS. [Concomitant]
     Active Substance: TACROLIMUS
     Dosage: 1 DOSE AS DIRECTED
     Route: 065
     Dates: start: 20110610
  14. SODIUM CHLORIDE. [Concomitant]
     Active Substance: SODIUM CHLORIDE
     Indication: FLUSHING
     Dosage: 1 DOSE AS DIRECTED
     Route: 065
     Dates: start: 20090522
  15. VANCOMYCIN [Concomitant]
     Active Substance: VANCOMYCIN
     Dosage: 1 DOSE AS DIRECTED
     Route: 065
     Dates: start: 20150606
  16. PREDNISONE. [Concomitant]
     Active Substance: PREDNISONE
     Dosage: 1 DOSE AS DIRECTED
     Route: 065
     Dates: start: 20110610

REACTIONS (1)
  - Drug dose omission [Unknown]
